FAERS Safety Report 4482334-8 (Version None)
Quarter: 2004Q4

REPORT INFORMATION
  Report Type: 
  Country: None (occurrence: None)
  Receive Date: 20041020
  Receipt Date: 20041004
  Transmission Date: 20050328
  Serious: Yes (Hospitalization, Other)
  Sender: FDA-Public Use
  Company Number: USA040977657

PATIENT
  Age: 44 Year
  Sex: Female

DRUGS (6)
  1. FORTEO [Suspect]
     Indication: OSTEOPOROSIS
     Dosage: 20 UG/1 DAY
  2. PREDNISONE [Concomitant]
  3. CYTOXAN [Concomitant]
  4. ATIVAN [Concomitant]
  5. AMITRIPTYLINE HCL [Concomitant]
  6. PRILOSEC (OMEPRAZOLE RATIOPHARM) [Concomitant]

REACTIONS (2)
  - PNEUMONITIS [None]
  - STERNAL FRACTURE [None]
